FAERS Safety Report 7250852-5 (Version None)
Quarter: 2011Q1

REPORT INFORMATION
  Report Type: 
  Country: None (occurrence: None)
  Receive Date: 20110128
  Receipt Date: 20100927
  Transmission Date: 20110831
  Serious: Yes (Other)
  Sender: FDA-Public Use
  Company Number: DE-ASTRAZENECA-2010SE42735

PATIENT
  Age: 22615 Day
  Sex: Female

DRUGS (2)
  1. BISOPROLOL [Concomitant]
  2. ANTRA [Suspect]
     Route: 048
     Dates: start: 20100904

REACTIONS (1)
  - HAEMATOCHEZIA [None]
